FAERS Safety Report 17398648 (Version 1)
Quarter: 2020Q1

REPORT INFORMATION
  Report Type: Spontaneous
  Country: US (occurrence: US)
  Receive Date: 20200210
  Receipt Date: 20200210
  Transmission Date: 20200409
  Serious: No
  Sender: FDA-Public Use
  Company Number: US-BEH-2020112479

PATIENT
  Sex: Male

DRUGS (1)
  1. CORIFACT [Suspect]
     Active Substance: FACTOR XIII CONCENTRATE (HUMAN)
     Indication: COAGULATION FACTOR DEFICIENCY
     Dosage: 4212 INTERNATIONAL UNIT, QMT, EVERY 28 DAYS
     Route: 042
     Dates: start: 20190511

REACTIONS (1)
  - Arthralgia [Unknown]
